FAERS Safety Report 6100070-9 (Version None)
Quarter: 2009Q1

REPORT INFORMATION
  Report Type: 
  Country: None (occurrence: None)
  Receive Date: 20090303
  Receipt Date: 20090227
  Transmission Date: 20090719
  Serious: Yes (Other)
  Sender: FDA-Public Use
  Company Number: B0562042A

PATIENT
  Age: 10 Year
  Sex: Male

DRUGS (7)
  1. RELENZA [Suspect]
     Indication: DRUG USE FOR UNKNOWN INDICATION
     Dosage: 10MG TWICE PER DAY
     Route: 055
     Dates: start: 20090119, end: 20090121
  2. CELTECT [Concomitant]
     Route: 048
  3. ONON [Concomitant]
     Route: 048
  4. NAUZELIN [Concomitant]
     Route: 065
  5. POLARAMINE [Concomitant]
     Route: 065
  6. MUCOSOLVAN [Concomitant]
     Route: 048
  7. LAC B [Concomitant]
     Route: 048

REACTIONS (3)
  - ABNORMAL BEHAVIOUR [None]
  - LOWER LIMB FRACTURE [None]
  - SKIN ULCER [None]
